FAERS Safety Report 4564654-1 (Version None)
Quarter: 2005Q1

REPORT INFORMATION
  Report Type: 
  Country: None (occurrence: None)
  Receive Date: 20050126
  Receipt Date: 20050112
  Transmission Date: 20050727
  Serious: No
  Sender: FDA-Public Use
  Company Number: 2005AP00240

PATIENT
  Age: 57 Year
  Sex: Male

DRUGS (3)
  1. ATENOLOL [Suspect]
     Dosage: 1 DF DAILY PO
     Route: 048
  2. AMLODIPINE BESYLATE [Suspect]
     Dosage: 1 DF DAILY PO
     Route: 048
  3. PRAZOSIN HYDROCHLORIDE [Suspect]
     Dosage: 1 DF DAILY PO
     Route: 048

REACTIONS (1)
  - METABOLIC DISORDER [None]
